FAERS Safety Report 10923474 (Version 2)
Quarter: 2015Q2

REPORT INFORMATION
  Report Type: Spontaneous
  Country: US (occurrence: US)
  Receive Date: 20150318
  Receipt Date: 20150526
  Transmission Date: 20150821
  Serious: Yes (Hospitalization)
  Sender: FDA-Public Use
  Company Number: US-JNJFOC-20130607613

PATIENT
  Age: 76 Year
  Sex: Female

DRUGS (16)
  1. NIACIN. [Concomitant]
     Active Substance: NIACIN
     Route: 065
  2. FERROCAL [Concomitant]
     Route: 065
     Dates: start: 20110912, end: 20110916
  3. HALDOL [Suspect]
     Active Substance: HALOPERIDOL
     Indication: PRODUCT USED FOR UNKNOWN INDICATION
     Route: 048
     Dates: start: 20110911, end: 20110916
  4. GLIBENCLAMIDE [Suspect]
     Active Substance: GLYBURIDE
     Indication: TYPE 2 DIABETES MELLITUS
     Route: 065
     Dates: end: 20120301
  5. CEFAZOLIN [Concomitant]
     Active Substance: CEFAZOLIN
     Route: 065
  6. ENOXAPARIN SODIUM. [Concomitant]
     Active Substance: ENOXAPARIN SODIUM
     Route: 065
  7. FOSALAN [Concomitant]
     Active Substance: ALENDRONATE SODIUM
     Route: 065
  8. DIGOXIN. [Concomitant]
     Active Substance: DIGOXIN
     Indication: ATRIAL FIBRILLATION
     Route: 048
     Dates: start: 20110912
  9. VABEN [Suspect]
     Active Substance: OXAZEPAM
     Indication: PRODUCT USED FOR UNKNOWN INDICATION
     Route: 065
     Dates: start: 20110303
  10. CLONEX [Concomitant]
     Route: 065
  11. FUROSEMIDE. [Concomitant]
     Active Substance: FUROSEMIDE
     Route: 065
  12. METFORMIN HCL [Suspect]
     Active Substance: METFORMIN HYDROCHLORIDE
     Indication: TYPE 2 DIABETES MELLITUS
     Route: 065
     Dates: end: 20120301
  13. SLOW-K [Concomitant]
     Active Substance: POTASSIUM CHLORIDE
     Indication: ATRIAL FIBRILLATION
     Route: 048
     Dates: start: 20110912
  14. GASTRO [Concomitant]
     Route: 065
     Dates: start: 20110912, end: 20110916
  15. ATENOLOL. [Concomitant]
     Active Substance: ATENOLOL
     Route: 065
  16. ASPIRIN. [Concomitant]
     Active Substance: ASPIRIN
     Route: 065

REACTIONS (1)
  - Hepatic enzyme increased [Recovered/Resolved]

NARRATIVE: CASE EVENT DATE: 20110912
